FAERS Safety Report 12783680 (Version 1)
Quarter: 2016Q3

REPORT INFORMATION
  Report Type: Spontaneous
  Country: US (occurrence: US)
  Receive Date: 20160927
  Receipt Date: 20160927
  Transmission Date: 20161109
  Serious: Yes (Hospitalization, Disabling)
  Sender: FDA-Public Use
  Company Number: None

PATIENT
  Age: 58 Year
  Sex: Female
  Weight: 95.26 kg

DRUGS (11)
  1. BENZTROPINE [Concomitant]
     Active Substance: BENZTROPINE
  2. ZOLPIDEM [Suspect]
     Active Substance: ZOLPIDEM\ZOLPIDEM TARTRATE
     Indication: INSOMNIA
     Dosage: 1 PILL AT BEDTIME BY MOUTH
     Route: 048
     Dates: start: 20120808
  3. INVEGA [Concomitant]
     Active Substance: PALIPERIDONE
  4. FOLIC ACID. [Concomitant]
     Active Substance: FOLIC ACID
  5. MULTI-VITAMIN [Concomitant]
     Active Substance: .ALPHA.-TOCOPHEROL ACETATE, DL-\ASCORBIC ACID\CYANOCOBALAMIN\FLUORIDE ION\FOLIC ACID\NIACIN\PYRIDOXINE\RIBOFLAVIN\THIAMINE\VITAMIN A\VITAMIN D
  6. LORAZEPAM. [Concomitant]
     Active Substance: LORAZEPAM
  7. GENERIC PERCOCET [Concomitant]
     Active Substance: ACETAMINOPHEN\OXYCODONE HYDROCHLORIDE
  8. GABAPENTIN. [Concomitant]
     Active Substance: GABAPENTIN
  9. AMLODIPINE [Concomitant]
     Active Substance: AMLODIPINE BESYLATE
  10. MELOXICAM. [Concomitant]
     Active Substance: MELOXICAM
  11. HALOPERIDOL. [Concomitant]
     Active Substance: HALOPERIDOL

REACTIONS (4)
  - Product quality issue [None]
  - Nausea [None]
  - Disorientation [None]
  - Initial insomnia [None]

NARRATIVE: CASE EVENT DATE: 20140101
